FAERS Safety Report 25286771 (Version 1)
Quarter: 2025Q2

REPORT INFORMATION
  Report Type: Other
  Country: FR (occurrence: FR)
  Receive Date: 20250509
  Receipt Date: 20250509
  Transmission Date: 20250717
  Serious: Yes (Death)
  Sender: ZYDUS PHARM
  Company Number: None

PATIENT

DRUGS (7)
  1. GABAPENTIN [Suspect]
     Active Substance: GABAPENTIN
     Indication: Wrong patient received product
     Route: 048
     Dates: start: 20250320, end: 20250320
  2. RAMIPRIL [Suspect]
     Active Substance: RAMIPRIL
     Indication: Wrong patient received product
     Route: 048
     Dates: start: 20250320, end: 20250320
  3. PANTOPRAZOLE [Suspect]
     Active Substance: PANTOPRAZOLE
     Indication: Wrong patient received product
     Route: 048
     Dates: start: 20250320, end: 20250320
  4. REPAGLINIDE [Suspect]
     Active Substance: REPAGLINIDE
     Indication: Wrong patient received product
     Route: 048
     Dates: start: 20250320, end: 20250320
  5. DAFALGAN [Suspect]
     Active Substance: ACETAMINOPHEN
     Indication: Wrong patient received product
     Route: 048
     Dates: start: 20250320, end: 20250320
  6. ELIQUIS [Suspect]
     Active Substance: APIXABAN
     Indication: Wrong patient received product
     Route: 048
     Dates: start: 20250320, end: 20250320
  7. OXAZEPAM [Suspect]
     Active Substance: OXAZEPAM
     Indication: Wrong patient received product
     Route: 048
     Dates: start: 20250320, end: 20250320

REACTIONS (4)
  - Faecal vomiting [Fatal]
  - Hypothermia [Fatal]
  - Hypotension [Fatal]
  - Wrong patient received product [Fatal]

NARRATIVE: CASE EVENT DATE: 20250320
